FAERS Safety Report 9172755 (Version 1)
Quarter: 2012Q4

REPORT INFORMATION
  Report Type: Report from Study
  Country: DE (occurrence: DE)
  Receive Date: 20120911
  Receipt Date: 20120911
  Transmission Date: 20130627
  Serious: No
  Sender: FDA-Public Use
  Company Number: PHHY2012DE078840

PATIENT
  Sex: Male

DRUGS (6)
  1. AMN107 [Suspect]
     Indication: CHRONIC MYELOID LEUKAEMIA
     Dosage: 600 mg, per day
     Route: 048
     Dates: start: 20120124
  2. LITALIR [Concomitant]
     Dosage: 3000 mg, UNK
     Dates: start: 20120112
  3. ALLOPURINOL [Concomitant]
     Dosage: 300 mg, UNK
     Dates: start: 2011
  4. PANTOZOL [Concomitant]
     Dosage: 40 mg, UNK
     Dates: start: 2011
  5. CETRIZIN [Concomitant]
     Dates: start: 20120214
  6. BEPANTHEN [Concomitant]
     Dates: start: 201205

REACTIONS (1)
  - Conjunctivitis [Recovered/Resolved]
